FAERS Safety Report 4394721-7 (Version None)
Quarter: 2004Q3

REPORT INFORMATION
  Report Type: 
  Country: None (occurrence: None)
  Receive Date: 20040706
  Receipt Date: 20040616
  Transmission Date: 20050211
  Serious: Yes (Other)
  Sender: FDA-Public Use
  Company Number: WAES 0406ITA00029

PATIENT
  Age: 75 Year
  Sex: Male

DRUGS (9)
  1. DECADRON [Suspect]
     Indication: MULTIPLE MYELOMA
     Dosage: 40 MG/4XM PO
     Route: 048
     Dates: start: 20030507
  2. THALIDOMIDE [Suspect]
     Indication: MULTIPLE MYELOMA
     Dosage: PO
     Route: 048
     Dates: start: 20030507
  3. CYCLOPHOSPHAMIDE [Concomitant]
  4. DOXORUBICIN [Concomitant]
  5. EPOGEN [Concomitant]
  6. MELPHALAN [Concomitant]
  7. PAMIDRONATE DISODIUM [Concomitant]
  8. PREDNISONE [Concomitant]
  9. VINCRISTINE SULFATE [Concomitant]

REACTIONS (6)
  - BRONCHOPNEUMONIA [None]
  - DRUG INEFFECTIVE [None]
  - HYPERVISCOSITY SYNDROME [None]
  - PLATELET COUNT DECREASED [None]
  - RED BLOOD CELL SEDIMENTATION RATE INCREASED [None]
  - WHITE BLOOD CELL COUNT DECREASED [None]
